FAERS Safety Report 17210336 (Version 3)
Quarter: 2020Q1

REPORT INFORMATION
  Report Type: Spontaneous
  Country: PL (occurrence: PL)
  Receive Date: 20191227
  Receipt Date: 20200214
  Transmission Date: 20200409
  Serious: Yes (Hospitalization)
  Sender: FDA-Public Use
  Company Number: PL-ASTRAZENECA-2019SF85309

PATIENT
  Age: 45 Year
  Sex: Female

DRUGS (7)
  1. AMISULPRIDE [Concomitant]
     Active Substance: AMISULPRIDE
     Route: 065
  2. LAMOTRIGINE. [Concomitant]
     Active Substance: LAMOTRIGINE
     Route: 065
  3. ARIPIPRAZOLE. [Concomitant]
     Active Substance: ARIPIPRAZOLE
     Route: 065
  4. LAMOTRIGINE. [Concomitant]
     Active Substance: LAMOTRIGINE
     Route: 065
  5. ARIPIPRAZOLE. [Concomitant]
     Active Substance: ARIPIPRAZOLE
     Route: 065
  6. QUETIAPINE. [Suspect]
     Active Substance: QUETIAPINE
     Route: 048
  7. QUETIAPINE. [Suspect]
     Active Substance: QUETIAPINE
     Route: 048

REACTIONS (11)
  - Depressive symptom [Recovering/Resolving]
  - Hallucination [Unknown]
  - Depressive delusion [Unknown]
  - Urinary incontinence [Unknown]
  - Hallucination, olfactory [Unknown]
  - Hyperhidrosis [Unknown]
  - Drug hypersensitivity [Unknown]
  - Delusion of reference [Unknown]
  - Extrapyramidal disorder [Unknown]
  - Delusion [Unknown]
  - Drug ineffective [Not Recovered/Not Resolved]
